FAERS Safety Report 8581422-4 (Version None)
Quarter: 2012Q3

REPORT INFORMATION
  Report Type: 
  Country: None (occurrence: None)
  Receive Date: 20120809
  Receipt Date: 20120801
  Transmission Date: 20120928
  Serious: Yes (Other)
  Sender: FDA-Public Use
  Company Number: US-BRISTOL-MYERS SQUIBB COMPANY-16829855

PATIENT
  Age: 75 Year
  Sex: Female
  Weight: 53 kg

DRUGS (1)
  1. ORENCIA [Suspect]
     Indication: RHEUMATOID ARTHRITIS
     Dosage: LAST INF ON 30JUL2012 RCEIVED 2 VIALS INFUSED WITH 6VIALS,1250MG
     Route: 042
     Dates: start: 20080709

REACTIONS (2)
  - BONE DISORDER [None]
  - OVERDOSE [None]
